FAERS Safety Report 19379772 (Version 1)
Quarter: 2021Q2

REPORT INFORMATION
  Report Type: Other
  Country: JP (occurrence: JP)
  Receive Date: 20210607
  Receipt Date: 20210607
  Transmission Date: 20210717
  Serious: Yes (Other)
  Sender: FDA-Public Use
  Company Number: JP-ROCHE-2842503

PATIENT
  Age: 71 Year
  Sex: Female
  Weight: 64.5 kg

DRUGS (13)
  1. OBINUTUZUMAB. [Suspect]
     Active Substance: OBINUTUZUMAB
     Indication: FOLLICULAR LYMPHOMA
     Route: 042
     Dates: start: 20201023, end: 20201023
  2. OBINUTUZUMAB. [Suspect]
     Active Substance: OBINUTUZUMAB
     Route: 041
     Dates: start: 20210212, end: 20210212
  3. DOXORUBICIN HYDROCHLORIDE. [Concomitant]
     Active Substance: DOXORUBICIN HYDROCHLORIDE
     Indication: FOLLICULAR LYMPHOMA
     Dosage: UNK
     Route: 041
     Dates: start: 20201026, end: 20210309
  4. OBINUTUZUMAB. [Suspect]
     Active Substance: OBINUTUZUMAB
     Route: 041
     Dates: start: 20201030, end: 20201030
  5. OBINUTUZUMAB. [Suspect]
     Active Substance: OBINUTUZUMAB
     Route: 041
     Dates: start: 20201118, end: 20201118
  6. CYCLOPHOSPHAMIDE MONOHYDRATE [Concomitant]
     Active Substance: CYCLOPHOSPHAMIDE
     Indication: FOLLICULAR LYMPHOMA
     Dosage: UNK
     Route: 041
     Dates: start: 20201026, end: 20210309
  7. OBINUTUZUMAB. [Suspect]
     Active Substance: OBINUTUZUMAB
     Route: 041
     Dates: start: 20201106, end: 20201106
  8. OBINUTUZUMAB. [Suspect]
     Active Substance: OBINUTUZUMAB
     Route: 041
     Dates: start: 20210310, end: 20210310
  9. OBINUTUZUMAB. [Suspect]
     Active Substance: OBINUTUZUMAB
     Route: 041
     Dates: start: 20210526, end: 20210526
  10. OBINUTUZUMAB. [Suspect]
     Active Substance: OBINUTUZUMAB
     Route: 041
     Dates: start: 20201211, end: 20201211
  11. OBINUTUZUMAB. [Suspect]
     Active Substance: OBINUTUZUMAB
     Route: 041
     Dates: start: 20210106, end: 20210106
  12. DOXORUBICIN HYDROCHLORIDE. [Concomitant]
     Active Substance: DOXORUBICIN HYDROCHLORIDE
     Indication: FOLLICULAR LYMPHOMA
     Dosage: UNK
     Route: 041
     Dates: start: 20201026, end: 20210309
  13. DOXORUBICIN HYDROCHLORIDE. [Concomitant]
     Active Substance: DOXORUBICIN HYDROCHLORIDE
     Indication: FOLLICULAR LYMPHOMA
     Dosage: UNK
     Route: 048
     Dates: start: 20201026, end: 20210309

REACTIONS (2)
  - Myelosuppression [Unknown]
  - Herpes zoster [Unknown]
